FAERS Safety Report 7608670-1 (Version None)
Quarter: 2011Q3

REPORT INFORMATION
  Report Type: 
  Country: None (occurrence: None)
  Receive Date: 20110714
  Receipt Date: 20110705
  Transmission Date: 20111222
  Serious: Yes (Other)
  Sender: FDA-Public Use
  Company Number: US-AMGEN-USASP2011034276

PATIENT
  Sex: Female

DRUGS (1)
  1. ENBREL [Suspect]
     Indication: JUVENILE ARTHRITIS
     Dosage: UNK
     Dates: start: 20110420

REACTIONS (3)
  - BLOOD THYROID STIMULATING HORMONE INCREASED [None]
  - MONOCYTE COUNT INCREASED [None]
  - LIPIDS INCREASED [None]
